FAERS Safety Report 22158485 (Version 2)
Quarter: 2023Q2

REPORT INFORMATION
  Report Type: Spontaneous
  Country: US (occurrence: US)
  Receive Date: 20230331
  Receipt Date: 20230613
  Transmission Date: 20230721
  Serious: Yes (Hospitalization, Other)
  Sender: FDA-Public Use
  Company Number: US-BRISTOL-MYERS SQUIBB COMPANY-2023-045537

PATIENT
  Age: 71 Year
  Sex: Female
  Weight: 55.79 kg

DRUGS (2)
  1. REVLIMID [Suspect]
     Active Substance: LENALIDOMIDE
     Indication: Plasma cell myeloma
     Dosage: 21D OF 28DAYS
     Route: 048
     Dates: start: 20221201
  2. REVLIMID [Suspect]
     Active Substance: LENALIDOMIDE
     Dosage: 21D OF 28DAYS
     Route: 048
     Dates: start: 20221201

REACTIONS (4)
  - Pneumonia [Recovering/Resolving]
  - Neuropathy peripheral [Unknown]
  - Cough [Unknown]
  - Rhinorrhoea [Unknown]

NARRATIVE: CASE EVENT DATE: 20230310
